FAERS Safety Report 7499073 (Version 4)
Quarter: 2013Q3

REPORT INFORMATION
  Report Type: Spontaneous
  Country: US (occurrence: US)
  Receive Date: 20100723
  Receipt Date: 20130724
  Transmission Date: 20140515
  Serious: Yes (Other)
  Sender: FDA-Public Use
  Company Number: US-JNJFOC-20100703862

PATIENT
  Age: 63 Year
  Sex: Male
  Weight: 95.26 kg

DRUGS (6)
  1. REMICADE [Suspect]
     Indication: CROHN^S DISEASE
     Route: 042
     Dates: start: 2006, end: 2006
  2. PREDNISONE [Concomitant]
  3. IMURAN [Concomitant]
  4. CAPOTEN [Concomitant]
     Indication: BLOOD PRESSURE
  5. PENTASA [Concomitant]
  6. LEVOXYL [Concomitant]
     Indication: THYROID DISORDER

REACTIONS (6)
  - Loss of consciousness [Recovered/Resolved]
  - Hypersensitivity [Recovered/Resolved]
  - Infusion related reaction [Recovered/Resolved]
  - Small intestinal stenosis [Unknown]
  - Hypersensitivity [Unknown]
  - Malaise [Recovered/Resolved]
